FAERS Safety Report 19079940 (Version 2)
Quarter: 2021Q2

REPORT INFORMATION
  Report Type: Spontaneous
  Country: US (occurrence: US)
  Receive Date: 20210401
  Receipt Date: 20210416
  Transmission Date: 20210717
  Serious: No
  Sender: FDA-Public Use
  Company Number: US-SA-2021SA106761

PATIENT
  Sex: Female

DRUGS (1)
  1. KEVZARA [Suspect]
     Active Substance: SARILUMAB
     Dosage: 200 MG/1.14 ML
     Route: 058
     Dates: end: 20210325

REACTIONS (4)
  - Unevaluable event [Unknown]
  - Bradykinesia [Unknown]
  - Pain in extremity [Unknown]
  - Drug ineffective [Unknown]
